FAERS Safety Report 5290335-5 (Version None)
Quarter: 2007Q2

REPORT INFORMATION
  Report Type: 
  Country: None (occurrence: None)
  Receive Date: 20070409
  Receipt Date: 20070328
  Transmission Date: 20071010
  Serious: Yes (Hospitalization)
  Sender: FDA-Public Use
  Company Number: IT-ELI_LILLY_AND_COMPANY-IT200704000355

PATIENT
  Age: 52 Year
  Sex: Male

DRUGS (2)
  1. ALIMTA [Suspect]
     Indication: PLEURAL MESOTHELIOMA MALIGNANT
     Dosage: 1 G, OTHER
     Route: 042
     Dates: start: 20061101, end: 20070315
  2. CISPLATIN [Concomitant]
     Dosage: 140 MG, UNK
     Route: 042
     Dates: start: 20061101, end: 20070315

REACTIONS (2)
  - ERYTHEMA [None]
  - OEDEMA PERIPHERAL [None]
